FAERS Safety Report 17735335 (Version 1)
Quarter: 2020Q2

REPORT INFORMATION
  Report Type: Report from Study
  Country: US (occurrence: US)
  Receive Date: 20200501
  Receipt Date: 20200501
  Transmission Date: 20200714
  Serious: Yes (Death)
  Sender: FDA-Public Use
  Company Number: US-ASTRAZENECA-2020SE57831

PATIENT
  Age: 69 Year
  Sex: Female

DRUGS (23)
  1. TYLENOL/CODEINE #3 [Concomitant]
  2. DECADRON [Concomitant]
     Active Substance: DEXAMETHASONE
  3. TYLENOL [Concomitant]
     Active Substance: ACETAMINOPHEN
  4. IRON [Concomitant]
     Active Substance: IRON
  5. LACTULOSE. [Concomitant]
     Active Substance: LACTULOSE
  6. TAGRISSO [Suspect]
     Active Substance: OSIMERTINIB
     Indication: LUNG CARCINOMA CELL TYPE UNSPECIFIED STAGE 0
     Route: 048
     Dates: start: 20190501
  7. ASPIR LOW [Concomitant]
     Active Substance: ASPIRIN
  8. BENADRYL [Concomitant]
     Active Substance: DIPHENHYDRAMINE HYDROCHLORIDE
  9. VITAMIN B12 [Concomitant]
     Active Substance: CYANOCOBALAMIN
  10. MIRALAX [Concomitant]
     Active Substance: POLYETHYLENE GLYCOL 3350
  11. XARELTO [Concomitant]
     Active Substance: RIVAROXABAN
  12. FOLIC ACID. [Concomitant]
     Active Substance: FOLIC ACID
  13. LYRICA [Concomitant]
     Active Substance: PREGABALIN
  14. NORVASC [Concomitant]
     Active Substance: AMLODIPINE BESYLATE
  15. KEPPRA [Concomitant]
     Active Substance: LEVETIRACETAM
  16. ROBAXIN [Concomitant]
     Active Substance: METHOCARBAMOL
  17. THIAMINE HCL [Concomitant]
     Active Substance: THIAMINE HYDROCHLORIDE
  18. NORVASC [Concomitant]
     Active Substance: AMLODIPINE BESYLATE
  19. MOVANTIK [Suspect]
     Active Substance: NALOXEGOL OXALATE
     Route: 048
  20. MULTIVITAMIN [Concomitant]
     Active Substance: VITAMINS
  21. HYDRALAZINE HCL [Concomitant]
     Active Substance: HYDRALAZINE HYDROCHLORIDE
  22. ZOFRAN [Concomitant]
     Active Substance: ONDANSETRON HYDROCHLORIDE
  23. LOVAZA [Concomitant]
     Active Substance: OMEGA-3-ACID ETHYL ESTERS

REACTIONS (1)
  - Death [Fatal]
